FAERS Safety Report 17299956 (Version 1)
Quarter: 2020Q1

REPORT INFORMATION
  Report Type: Spontaneous
  Country: RU (occurrence: RU)
  Receive Date: 20200122
  Receipt Date: 20200122
  Transmission Date: 20200409
  Serious: Yes (Other)
  Sender: FDA-Public Use
  Company Number: RU-APOTEX-2020AP006873

PATIENT
  Age: 38 Year
  Sex: Female

DRUGS (6)
  1. PAROXETINE. [Suspect]
     Active Substance: PAROXETINE
     Indication: DEPRESSION
     Dosage: UNK
     Route: 065
  2. IBUPROFEN. [Suspect]
     Active Substance: IBUPROFEN
     Indication: HEADACHE
     Dosage: UNK
     Route: 048
  3. IBUPROFEN. [Suspect]
     Active Substance: IBUPROFEN
     Dosage: UNK (20-25 TABLETS PER MONTH)
     Route: 048
  4. CITRAMON                           /00141001/ [Suspect]
     Active Substance: ASPIRIN\CAFFEINE
     Indication: HEADACHE
     Dosage: UNK
     Route: 065
  5. PAROXETINE. [Suspect]
     Active Substance: PAROXETINE
     Dosage: 10 MG, Q.AM
     Route: 065
  6. IBUPROFEN. [Suspect]
     Active Substance: IBUPROFEN
     Dosage: 30 DF, UNK (Z PER MONTH)
     Route: 048

REACTIONS (29)
  - Fear of death [Recovered/Resolved]
  - Autonomic nervous system imbalance [Unknown]
  - Head discomfort [Recovering/Resolving]
  - Phobia of driving [Recovered/Resolved]
  - Agoraphobia [Recovered/Resolved]
  - Tension headache [Recovering/Resolving]
  - Dyspnoea [Recovered/Resolved]
  - Overdose [Unknown]
  - Panic attack [Recovered/Resolved]
  - Anxiety [Recovered/Resolved]
  - Tearfulness [Recovered/Resolved]
  - Panic disorder [Recovered/Resolved]
  - Dizziness [Recovered/Resolved]
  - Migraine [Recovered/Resolved]
  - Drug ineffective [Unknown]
  - Osteochondrosis [Unknown]
  - Bradyphrenia [Recovered/Resolved]
  - Drug intolerance [Recovered/Resolved]
  - Depressed mood [Recovered/Resolved]
  - Somnolence [Recovered/Resolved]
  - Drug dependence [Recovering/Resolving]
  - Housebound [Recovered/Resolved]
  - Impaired work ability [Recovered/Resolved]
  - Depressive symptom [Recovered/Resolved]
  - Asthenia [Recovered/Resolved]
  - Fear-related avoidance of activities [Recovered/Resolved]
  - Quality of life decreased [Recovered/Resolved]
  - Blood pressure increased [Unknown]
  - Palpitations [Recovered/Resolved]
